FAERS Safety Report 19770469 (Version 1)
Quarter: 2021Q3

REPORT INFORMATION
  Report Type: Spontaneous
  Country: US (occurrence: US)
  Receive Date: 20210831
  Receipt Date: 20210831
  Transmission Date: 20211014
  Serious: Yes (Hospitalization)
  Sender: FDA-Public Use
  Company Number: None

PATIENT
  Sex: Female

DRUGS (13)
  1. TRICOR [Concomitant]
     Active Substance: FENOFIBRATE
  2. CITALOPRAM [Concomitant]
     Active Substance: CITALOPRAM HYDROBROMIDE
  3. TRIAMCINOLON CRE 0.1% [Concomitant]
  4. MYRBETRIQ [Concomitant]
     Active Substance: MIRABEGRON
  5. AMPYRA [Concomitant]
     Active Substance: DALFAMPRIDINE
  6. GLATIRAMER [Suspect]
     Active Substance: GLATIRAMER
     Indication: MULTIPLE SCLEROSIS
     Dosage: ?          OTHER FREQUENCY:3 TIMES PER WEEK;?
     Route: 058
     Dates: start: 20200214
  7. TOVIAZ [Concomitant]
     Active Substance: FESOTERODINE FUMARATE
  8. GABAPENTIN. [Concomitant]
     Active Substance: GABAPENTIN
  9. TIZANIDINE. [Concomitant]
     Active Substance: TIZANIDINE
  10. SOLIFENACIN [Concomitant]
     Active Substance: SOLIFENACIN
  11. PREGABALIN. [Concomitant]
     Active Substance: PREGABALIN
  12. CLOTRIM/BETA CRE [Concomitant]
  13. DOXEPIN [Concomitant]
     Active Substance: DOXEPIN

REACTIONS (3)
  - Nephrolithiasis [None]
  - Therapy interrupted [None]
  - Infection [None]
